FAERS Safety Report 7487728-4 (Version None)
Quarter: 2011Q2

REPORT INFORMATION
  Report Type: 
  Country: None (occurrence: None)
  Receive Date: 20110518
  Receipt Date: 20110509
  Transmission Date: 20111010
  Serious: Yes (Other)
  Sender: FDA-Public Use
  Company Number: PHFR2011GB03002

PATIENT
  Sex: Male

DRUGS (1)
  1. TEGRETOL [Suspect]
     Indication: EPILEPSY
     Dosage: 200 MG, UNK

REACTIONS (2)
  - THROMBOSIS [None]
  - TREMOR [None]
